FAERS Safety Report 5041131-5 (Version None)
Quarter: 2006Q2

REPORT INFORMATION
  Report Type: 
  Country: None (occurrence: None)
  Receive Date: 20060626
  Receipt Date: 20060615
  Transmission Date: 20061013
  Serious: Yes (Hospitalization, Other)
  Sender: FDA-Public Use
  Company Number: 233759K06USA

PATIENT
  Age: 37 Year
  Sex: Female

DRUGS (3)
  1. REBIF [Suspect]
     Indication: MULTIPLE SCLEROSIS
     Dosage: 44 MCG, 3 IN 1 WEEKS, SUBCUTANEOUS; SEE IMAGE
     Route: 058
     Dates: start: 20040222, end: 20060601
  2. REBIF [Suspect]
     Indication: MULTIPLE SCLEROSIS
     Dosage: 44 MCG, 3 IN 1 WEEKS, SUBCUTANEOUS; SEE IMAGE
     Route: 058
     Dates: start: 20060601, end: 20060601
  3. REBIF [Suspect]
     Indication: MULTIPLE SCLEROSIS
     Dosage: 44 MCG, 3 IN 1 WEEKS, SUBCUTANEOUS; SEE IMAGE
     Route: 058
     Dates: start: 20060613, end: 20060601

REACTIONS (6)
  - HEADACHE [None]
  - INJECTION SITE REACTION [None]
  - MENORRHAGIA [None]
  - MULTIPLE ALLERGIES [None]
  - OVARIAN MASS [None]
  - SURGICAL PROCEDURE REPEATED [None]
